FAERS Safety Report 22642610 (Version 1)
Quarter: 2023Q2

REPORT INFORMATION
  Report Type: Report from Study
  Country: MX (occurrence: MX)
  Receive Date: 20230627
  Receipt Date: 20230627
  Transmission Date: 20230721
  Serious: Yes (Hospitalization, Other)
  Sender: FDA-Public Use
  Company Number: MX-AMGEN-MEXSL2023109151

PATIENT
  Age: 10 Year
  Sex: Male

DRUGS (1)
  1. BLINCYTO [Suspect]
     Active Substance: BLINATUMOMAB
     Indication: Acute lymphocytic leukaemia
     Dosage: 2.3 MILLILITER EVERY 48 HOURS WITH A RATE OF 5 MILLITER PER HOUR
     Route: 065
     Dates: start: 20230617

REACTIONS (4)
  - Haematochezia [Unknown]
  - Seizure [Unknown]
  - Pyrexia [Unknown]
  - Depression [Unknown]

NARRATIVE: CASE EVENT DATE: 20230617
